FAERS Safety Report 5974902-9 (Version None)
Quarter: 2008Q4

REPORT INFORMATION
  Report Type: 
  Country: None (occurrence: None)
  Receive Date: 20081202
  Receipt Date: 20081125
  Transmission Date: 20090506
  Serious: Yes (Other)
  Sender: FDA-Public Use
  Company Number: AU-PFIZER INC-2008100292

PATIENT
  Age: 52 Year
  Sex: Male

DRUGS (3)
  1. CHAMPIX [Suspect]
  2. INDOCIN [Suspect]
  3. VOLTAREN [Suspect]

REACTIONS (3)
  - DIARRHOEA [None]
  - HAEMATOCHEZIA [None]
  - PYREXIA [None]
